FAERS Safety Report 7492803-4 (Version None)
Quarter: 2011Q2

REPORT INFORMATION
  Report Type: 
  Country: None (occurrence: None)
  Receive Date: 20110519
  Receipt Date: 20101210
  Transmission Date: 20111010
  Serious: Yes (Death, Other)
  Sender: FDA-Public Use
  Company Number: CA-BAYER-2010-004814

PATIENT
  Sex: Female

DRUGS (1)
  1. CIPRO [Suspect]

REACTIONS (36)
  - LEUKOCYTOCLASTIC VASCULITIS [None]
  - TENDON DISORDER [None]
  - NAUSEA [None]
  - LIVER DISORDER [None]
  - HEPATOTOXICITY [None]
  - PLATELET COUNT INCREASED [None]
  - PROTHROMBIN TIME SHORTENED [None]
  - MYALGIA [None]
  - HEPATIC FAILURE [None]
  - ABDOMINAL PAIN [None]
  - NEUROPATHY PERIPHERAL [None]
  - ARTHRALGIA [None]
  - LEUKOPENIA [None]
  - ATTENTION DEFICIT/HYPERACTIVITY DISORDER [None]
  - VISUAL IMPAIRMENT [None]
  - UNEVALUABLE EVENT [None]
  - PROTHROMBIN TIME PROLONGED [None]
  - ANXIETY [None]
  - HEADACHE [None]
  - ARRHYTHMIA [None]
  - CONVULSION [None]
  - DEPRESSION [None]
  - DIZZINESS [None]
  - VISION BLURRED [None]
  - PLATELET COUNT DECREASED [None]
  - AMNESIA [None]
  - HEPATIC ENZYME INCREASED [None]
  - HYPERSENSITIVITY [None]
  - COLITIS [None]
  - AGITATION [None]
  - PAIN OF SKIN [None]
  - TENDONITIS [None]
  - ANAEMIA [None]
  - SKIN DISORDER [None]
  - VOMITING [None]
  - INSOMNIA [None]
